FAERS Safety Report 7364037-5 (Version None)
Quarter: 2011Q1

REPORT INFORMATION
  Report Type: 
  Country: None (occurrence: None)
  Receive Date: 20110321
  Receipt Date: 20110307
  Transmission Date: 20110831
  Serious: Yes (Other)
  Sender: FDA-Public Use
  Company Number: PHEH2008US04439

PATIENT
  Sex: Female

DRUGS (12)
  1. LEVAQUIN [Concomitant]
     Dosage: 500 MG, UNK
  2. CALCIUM WITH VITAMIN D [Concomitant]
     Dosage: 600 UNK, UNK
  3. ZOMETA [Suspect]
     Indication: NEOPLASM MALIGNANT
     Dosage: 4 MG, QMO
     Dates: start: 20030101, end: 20040501
  4. XANAX [Concomitant]
     Dosage: 0.25 MG, TID
  5. THALIDOMIDE [Concomitant]
  6. TAMOXIFEN CITRATE [Concomitant]
  7. IMIPRAMINE [Concomitant]
  8. LOPRESSOR [Concomitant]
     Dosage: 5 MG, TID
     Dates: start: 20000815
  9. AREDIA [Suspect]
     Dosage: 90 MG, QMO
  10. INDERAL [Concomitant]
     Dosage: 20 MG, BID
  11. MINOCIN - SLOW RELEASE [Concomitant]
  12. VICOPROFEN [Concomitant]
     Dosage: @ TIMES DAILY

REACTIONS (39)
  - SPINAL OSTEOARTHRITIS [None]
  - DENTURE WEARER [None]
  - COLITIS [None]
  - FATIGUE [None]
  - COMPRESSION FRACTURE [None]
  - OSTEONECROSIS OF JAW [None]
  - IMMUNOGLOBULINS DECREASED [None]
  - DIVERTICULITIS [None]
  - SENSORY LOSS [None]
  - BACK PAIN [None]
  - HYPOPHAGIA [None]
  - TOOTH LOSS [None]
  - PRIMARY SEQUESTRUM [None]
  - URINARY TRACT INFECTION [None]
  - SCAR [None]
  - INJURY [None]
  - SWELLING FACE [None]
  - CYSTOCELE [None]
  - CLOSTRIDIUM DIFFICILE COLITIS [None]
  - INTERVERTEBRAL DISC DISORDER [None]
  - PAIN [None]
  - LIFE EXPECTANCY SHORTENED [None]
  - ANHEDONIA [None]
  - GINGIVITIS [None]
  - SWELLING [None]
  - TEMPERATURE INTOLERANCE [None]
  - INTERVERTEBRAL DISC DEGENERATION [None]
  - FOOT FRACTURE [None]
  - DISCOMFORT [None]
  - EMOTIONAL DISTRESS [None]
  - ANXIETY [None]
  - PHYSICAL DISABILITY [None]
  - GINGIVAL DISORDER [None]
  - HERPES ZOSTER [None]
  - ORAL INFECTION [None]
  - GINGIVAL BLEEDING [None]
  - TOOTH DISORDER [None]
  - PAIN IN JAW [None]
  - FISTULA [None]
